FAERS Safety Report 21584187 (Version 1)
Quarter: 2022Q4

REPORT INFORMATION
  Report Type: Spontaneous
  Country: PL (occurrence: PL)
  Receive Date: 20221111
  Receipt Date: 20221111
  Transmission Date: 20230113
  Serious: Yes (Other)
  Sender: FDA-Public Use
  Company Number: None

PATIENT
  Age: 74 Year
  Sex: Female
  Weight: 55 kg

DRUGS (1)
  1. CAPECITABINE [Suspect]
     Active Substance: CAPECITABINE
     Indication: Product used for unknown indication
     Dosage: NO INTERVAL, UNIT DOSE: 2000 MG, ADDITIONAL INFO: THE DRUG HAS NOT BEEN USED IN THE PAST.
     Route: 065
     Dates: start: 20220722, end: 20220804

REACTIONS (2)
  - Palmar-plantar erythrodysaesthesia syndrome [Recovered/Resolved with Sequelae]
  - Neutropenia [Recovered/Resolved with Sequelae]

NARRATIVE: CASE EVENT DATE: 20220812
